FAERS Safety Report 20741927 (Version 1)
Quarter: 2022Q2

REPORT INFORMATION
  Report Type: Spontaneous
  Country: HR (occurrence: HR)
  Receive Date: 20220423
  Receipt Date: 20220423
  Transmission Date: 20220721
  Serious: Yes (Other)
  Sender: FDA-Public Use
  Company Number: None

PATIENT
  Age: 25 Year
  Sex: Female

DRUGS (4)
  1. QUETIAPINE [Suspect]
     Active Substance: QUETIAPINE
     Dosage: UNIT DOSE : 500 MG , FREQUENCY TIME : 1 DAYS, THERAPY DURATION : 1 DAYS
     Route: 048
     Dates: start: 20220213, end: 20220213
  2. ZYPREXA [Suspect]
     Active Substance: OLANZAPINE
     Dosage: UNIT DOSE : 3 DOSAGE FORMS, FREQUENCY TIME : 1 DAYS, THERAPY DURATION : 1 DAYS
     Route: 048
     Dates: start: 20220213, end: 20220213
  3. ZOLOFT [Suspect]
     Active Substance: SERTRALINE HYDROCHLORIDE
     Dosage: UNIT DOSE : 500 MG, FREQUENCY TIME : 1 DAYS, THERAPY DURATION : 1 DAYS
     Route: 048
     Dates: start: 20220213, end: 20220213
  4. MIRTAZAPINE [Suspect]
     Active Substance: MIRTAZAPINE
     Dosage: UNIT DOSE : 225 MG , FREQUENCY TIME : 1 DAYS, THERAPY DURATION : 1 DAYS
     Route: 048
     Dates: start: 20220213, end: 20220213

REACTIONS (4)
  - Intentional overdose [Unknown]
  - Tachycardia [Unknown]
  - Suicide attempt [Unknown]
  - Somnolence [Unknown]

NARRATIVE: CASE EVENT DATE: 20220213
